FAERS Safety Report 7355766-8 (Version None)
Quarter: 2011Q1

REPORT INFORMATION
  Report Type: 
  Country: None (occurrence: None)
  Receive Date: 20110316
  Receipt Date: 20110311
  Transmission Date: 20110831
  Serious: Yes (Hospitalization, Other)
  Sender: FDA-Public Use
  Company Number: IE-MERCK-1101GBR00096

PATIENT
  Age: 67 Year
  Sex: Female

DRUGS (6)
  1. PREDNISOLONE [Concomitant]
     Route: 065
  2. CORTICOSTEROIDS (UNSPECIFIED) [Concomitant]
     Route: 065
  3. FOSAMAX [Suspect]
     Indication: OSTEOPOROSIS
     Route: 048
     Dates: start: 20030701, end: 20110118
  4. LEFLUNOMIDE [Concomitant]
     Route: 065
  5. RABEPRAZOLE SODIUM [Concomitant]
     Route: 065
  6. DICLOFENAC SODIUM [Concomitant]
     Route: 065

REACTIONS (1)
  - FEMUR FRACTURE [None]
